FAERS Safety Report 5446312-4 (Version None)
Quarter: 2007Q3

REPORT INFORMATION
  Report Type: 
  Country: None (occurrence: None)
  Receive Date: 20070907
  Receipt Date: 20070830
  Transmission Date: 20080115
  Serious: Yes (Hospitalization)
  Sender: FDA-Public Use
  Company Number: SE-ASTRAZENECA-2007SE04652

PATIENT
  Age: 50 Year
  Sex: Male

DRUGS (9)
  1. ATACAND [Suspect]
     Route: 048
     Dates: start: 20070401, end: 20070806
  2. CRESTOR [Suspect]
     Route: 048
     Dates: start: 20060101
  3. EZETROL [Suspect]
     Route: 048
     Dates: start: 20060101
  4. BISOPROLOL ALPHARMA [Concomitant]
  5. INSULATARD SUSPENSION FOR INJECTION [Concomitant]
  6. ENALAPRIL ACTAVIS [Concomitant]
  7. IMDUR PROLONGED RELEASE [Concomitant]
  8. TROMBYL [Concomitant]
  9. HUMALOG SOLUTION FOR INJECTION [Concomitant]

REACTIONS (2)
  - BLOOD CREATININE INCREASED [None]
  - RHABDOMYOLYSIS [None]
